FAERS Safety Report 4401380-3 (Version None)
Quarter: 2004Q3

REPORT INFORMATION
  Report Type: 
  Country: None (occurrence: None)
  Receive Date: 20040907
  Receipt Date: 20040405
  Transmission Date: 20050211
  Serious: No
  Sender: FDA-Public Use
  Company Number: US-BRISTOL-MYERS SQUIBB COMPANY-12550984

PATIENT
  Age: 72 Year
  Sex: Female
  Weight: 132 kg

DRUGS (4)
  1. COUMADIN [Suspect]
     Indication: ATRIAL FIBRILLATION
     Dosage: DOSAGE: 5MG AND 7.5MG ALTERNATING DAILY
     Route: 048
     Dates: start: 19980101
  2. LANOXIN [Concomitant]
  3. CARDIZEM [Concomitant]
  4. DEMADEX [Concomitant]

REACTIONS (4)
  - ASTHENIA [None]
  - CONTUSION [None]
  - HYPOAESTHESIA [None]
  - OEDEMA PERIPHERAL [None]
